FAERS Safety Report 25263615 (Version 1)
Quarter: 2025Q2

REPORT INFORMATION
  Report Type: Spontaneous
  Country: US (occurrence: US)
  Receive Date: 20250502
  Receipt Date: 20250502
  Transmission Date: 20250717
  Serious: Yes (Hospitalization)
  Sender: EMD SERONO INC
  Company Number: US-Merck Healthcare KGaA-2025021431

PATIENT
  Sex: Female

DRUGS (3)
  1. CLADRIBINE [Suspect]
     Active Substance: CLADRIBINE
     Indication: Product used for unknown indication
  2. CLADRIBINE [Suspect]
     Active Substance: CLADRIBINE
  3. CLADRIBINE [Suspect]
     Active Substance: CLADRIBINE

REACTIONS (2)
  - Pancytopenia [Not Recovered/Not Resolved]
  - Herpes zoster [Unknown]

NARRATIVE: CASE EVENT DATE: 20250301
